FAERS Safety Report 5893227-3 (Version None)
Quarter: 2008Q3

REPORT INFORMATION
  Report Type: 
  Country: None (occurrence: None)
  Receive Date: 20080919
  Receipt Date: 20080910
  Transmission Date: 20090109
  Serious: Yes (Other)
  Sender: FDA-Public Use
  Company Number: GXKR2008GB08713

PATIENT
  Age: 54 Year
  Sex: Female
  Weight: 67.7 kg

DRUGS (5)
  1. DOXAZOSIN MESYLATE [Suspect]
     Indication: BLOOD PRESSURE INCREASED
     Dosage: ORAL
     Route: 048
     Dates: end: 20080601
  2. ACETYLSALICYLIC ACID SRT [Concomitant]
  3. ATENOLOL [Concomitant]
  4. BENDROFLUAZIDE (BENDROFLUMETHIAZIDE) [Concomitant]
  5. EPROSARTAN (EPROSARTAN) [Concomitant]

REACTIONS (1)
  - CHRONIC HEPATITIS [None]
